FAERS Safety Report 7953186-6 (Version None)
Quarter: 2011Q4

REPORT INFORMATION
  Report Type: 
  Country: None (occurrence: None)
  Receive Date: 20111201
  Receipt Date: 20111121
  Transmission Date: 20120403
  Serious: Yes (Hospitalization)
  Sender: FDA-Public Use
  Company Number: FR-JNJFOC-20101206608

PATIENT
  Sex: Male
  Weight: 74 kg

DRUGS (3)
  1. PENTASA [Concomitant]
     Indication: COLITIS ULCERATIVE
  2. IMURAN [Concomitant]
     Indication: COLITIS ULCERATIVE
     Route: 048
  3. REMICADE [Suspect]
     Indication: COLITIS ULCERATIVE
     Route: 042
     Dates: start: 20100603, end: 20100909

REACTIONS (1)
  - LUPUS-LIKE SYNDROME [None]
